FAERS Safety Report 16160325 (Version 2)
Quarter: 2019Q2

REPORT INFORMATION
  Report Type: Report from Study
  Country: None (occurrence: RO)
  Receive Date: 20190404
  Receipt Date: 20190409
  Transmission Date: 20190711
  Serious: Yes (Hospitalization, Disabling, Other)
  Sender: FDA-Public Use
  Company Number: RO-ABBVIE-19S-135-2729660-00

PATIENT
  Age: 70 Year
  Sex: Female

DRUGS (6)
  1. GABARAN [Concomitant]
     Active Substance: GABAPENTIN
     Indication: PERIPHERAL MOTOR NEUROPATHY
     Route: 048
  2. SELEGOS [Concomitant]
     Indication: PARKINSON^S DISEASE
     Route: 048
  3. INDAPAMIDE. [Concomitant]
     Active Substance: INDAPAMIDE
     Indication: HYPERTENSION
     Route: 048
  4. DETRALEX [Concomitant]
     Active Substance: DIOSMIN\HESPERIDIN
     Indication: PERIPHERAL VENOUS DISEASE
     Route: 048
  5. DUODOPA [Suspect]
     Active Substance: CARBIDOPA\LEVODOPA
     Indication: PARKINSON^S DISEASE
     Dosage: DM=8.00, DC=6.80, ED=8.00, NRED=2, DMN=0.00, DCN=0.00, EDN=0.00, NREDN=0
     Route: 050
     Dates: start: 20131211
  6. DRIPTANE [Concomitant]
     Active Substance: OXYBUTYNIN
     Indication: URINARY INCONTINENCE
     Route: 048

REACTIONS (11)
  - Breast oedema [Recovering/Resolving]
  - Productive cough [Recovering/Resolving]
  - Breast swelling [Not Recovered/Not Resolved]
  - Interstitial lung disease [Recovered/Resolved]
  - Pulmonary mass [Unknown]
  - Oedema peripheral [Recovering/Resolving]
  - Congestive cardiomyopathy [Not Recovered/Not Resolved]
  - Respiratory failure [Recovered/Resolved]
  - Lymphadenopathy [Not Recovered/Not Resolved]
  - Joint dislocation [Not Recovered/Not Resolved]
  - Haematoma [Not Recovered/Not Resolved]

NARRATIVE: CASE EVENT DATE: 20190320
